FAERS Safety Report 6758419-X (Version None)
Quarter: 2010Q2

REPORT INFORMATION
  Report Type: 
  Country: None (occurrence: None)
  Receive Date: 20100603
  Receipt Date: 20100518
  Transmission Date: 20101027
  Serious: Yes (Hospitalization)
  Sender: FDA-Public Use
  Company Number: 2010-00318

PATIENT
  Age: 67 Year
  Sex: Male
  Weight: 101.7 kg

DRUGS (7)
  1. LISINOPRIL [Suspect]
     Indication: HYPERTENSION
     Dates: start: 20091222
  2. DOUBLE BLINDED STUDY DRUG [Suspect]
     Indication: HYPERTENSION
     Dosage: ORAL
     Dates: start: 20100120, end: 20100206
  3. SIMFASTATIN [Concomitant]
  4. TRAMADOL [Concomitant]
  5. DIAZEMPAM (UNKNOWN) [Concomitant]
  6. OMEPRAZOLE [Concomitant]
  7. AZOR [Concomitant]

REACTIONS (15)
  - ANGINA PECTORIS [None]
  - BLOOD CHOLESTEROL INCREASED [None]
  - BLOOD GLUCOSE INCREASED [None]
  - BLOOD POTASSIUM DECREASED [None]
  - BLOOD SODIUM DECREASED [None]
  - BLOOD UREA INCREASED [None]
  - CHEST PAIN [None]
  - DYSPHAGIA [None]
  - GASTRITIS [None]
  - GASTROINTESTINAL STENOSIS [None]
  - HAEMOPTYSIS [None]
  - NAUSEA [None]
  - OESOPHAGEAL DILATATION [None]
  - OESOPHAGEAL STENOSIS [None]
  - REFLUX OESOPHAGITIS [None]
